FAERS Safety Report 15324993 (Version 2)
Quarter: 2018Q3

REPORT INFORMATION
  Report Type: Spontaneous
  Country: JP (occurrence: JP)
  Receive Date: 20180828
  Receipt Date: 20180911
  Transmission Date: 20181010
  Serious: No
  Sender: FDA-Public Use
  Company Number: JP-ELI_LILLY_AND_COMPANY-JP201808010826

PATIENT
  Age: 83 Year
  Sex: Male

DRUGS (5)
  1. MAGNESII OXIDUM [Concomitant]
     Dosage: 1 G, UNK
     Route: 048
  2. HALCION [Concomitant]
     Active Substance: TRIAZOLAM
     Dosage: 1 DF, DAILY
     Route: 048
  3. ZALUTIA [Suspect]
     Active Substance: TADALAFIL
     Indication: PRODUCT USED FOR UNKNOWN INDICATION
     Route: 048
  4. URIEF [Concomitant]
     Active Substance: SILODOSIN
     Dosage: 2 DF, UNK
     Route: 048
  5. REBAMIPIDE [Concomitant]
     Active Substance: REBAMIPIDE
     Dosage: 3 DF, UNK
     Route: 048

REACTIONS (1)
  - Ocular hyperaemia [Recovered/Resolved]
